FAERS Safety Report 21185329 (Version 1)
Quarter: 2022Q3

REPORT INFORMATION
  Report Type: Report from Study
  Country: US (occurrence: US)
  Receive Date: 20220808
  Receipt Date: 20220808
  Transmission Date: 20221027
  Serious: Yes (Hospitalization, Other)
  Sender: FDA-Public Use
  Company Number: US-BRISTOL-MYERS SQUIBB COMPANY-2022-080638

PATIENT
  Age: 74 Year
  Sex: Female
  Weight: 88.45 kg

DRUGS (1)
  1. REVLIMID [Suspect]
     Active Substance: LENALIDOMIDE
     Indication: Product used for unknown indication
     Dosage: 28 DAYS
     Route: 048

REACTIONS (16)
  - Asthenia [Unknown]
  - Loss of consciousness [Unknown]
  - Vaginal haemorrhage [Unknown]
  - Pneumonia [Unknown]
  - Infection [Unknown]
  - Vomiting [Unknown]
  - Feeling abnormal [Unknown]
  - Rash [Unknown]
  - Fluid retention [Unknown]
  - Drug hypersensitivity [Unknown]
  - Malaise [Unknown]
  - Memory impairment [Unknown]
  - Chest discomfort [Unknown]
  - Thrombosis [Unknown]
  - Bedridden [Unknown]
  - Pain [Unknown]
